FAERS Safety Report 6198514-X (Version None)
Quarter: 2009Q2

REPORT INFORMATION
  Report Type: 
  Country: None (occurrence: None)
  Receive Date: 20090521
  Receipt Date: 20090514
  Transmission Date: 20091009
  Serious: Yes (Hospitalization)
  Sender: FDA-Public Use
  Company Number: PHHY2009JP11248

PATIENT
  Sex: Male
  Weight: 79 kg

DRUGS (4)
  1. DIOVAN T30230+TAB+HY [Suspect]
     Indication: HYPERTENSION
     Dosage: 80 MG, QD
     Route: 048
     Dates: start: 20071027, end: 20081014
  2. CALBLOCK [Concomitant]
     Indication: HYPERTENSION
     Dosage: 16 MG
     Route: 048
     Dates: start: 20060107, end: 20080324
  3. OLMETEC [Concomitant]
     Dosage: 20 MG
     Route: 048
     Dates: start: 20050502, end: 20071027
  4. CONIEL [Concomitant]
     Dosage: 4 MG
     Route: 048
     Dates: start: 20080324, end: 20081014

REACTIONS (5)
  - ABDOMINAL PAIN UPPER [None]
  - GASTRECTOMY [None]
  - GASTRIC CANCER [None]
  - HEART RATE INCREASED [None]
  - SURGERY [None]
